FAERS Safety Report 6288642-2 (Version None)
Quarter: 2009Q3

REPORT INFORMATION
  Report Type: 
  Country: None (occurrence: None)
  Receive Date: 20090727
  Receipt Date: 20090701
  Transmission Date: 20100115
  Serious: Yes (Life-Threatening, Hospitalization)
  Sender: FDA-Public Use
  Company Number: JPI-P-007108

PATIENT
  Age: 25 Year
  Sex: Male

DRUGS (4)
  1. LUVOX [Suspect]
     Indication: DEPRESSION
     Dosage: 50 MG, 1 D, ORAL; 100 MG 1 D, ORAL
     Route: 048
     Dates: start: 20080501, end: 20080909
  2. LUVOX [Suspect]
     Indication: DEPRESSION
     Dosage: 50 MG, 1 D, ORAL; 100 MG 1 D, ORAL
     Route: 048
     Dates: start: 20080910, end: 20080923
  3. OLANZAPINE [Suspect]
     Indication: DEPRESSION
     Dosage: 2.5 MG, 1 D, ORAL
     Route: 048
     Dates: start: 20080501, end: 20080923
  4. BROMAZEPAM [Suspect]
     Indication: DEPRESSION
     Dosage: 5 MG, 1 D, ORAL
     Route: 048
     Dates: start: 20080501, end: 20080923

REACTIONS (5)
  - AGITATION [None]
  - CONDITION AGGRAVATED [None]
  - DEPRESSION [None]
  - INAPPROPRIATE ANTIDIURETIC HORMONE SECRETION [None]
  - NEUROLEPTIC MALIGNANT SYNDROME [None]
